FAERS Safety Report 4321454-5 (Version None)
Quarter: 2004Q1

REPORT INFORMATION
  Report Type: 
  Country: None (occurrence: None)
  Receive Date: 20040322
  Receipt Date: 20030513
  Transmission Date: 20041129
  Serious: No
  Sender: FDA-Public Use
  Company Number: US-BRISTOL-MYERS SQUIBB COMPANY-12279014

PATIENT
  Age: 40 Year
  Sex: Female
  Weight: 59 kg

DRUGS (4)
  1. VAGISTAT-1 [Suspect]
     Indication: VAGINAL MYCOSIS
     Route: 067
     Dates: start: 20030512, end: 20030512
  2. METHADONE [Concomitant]
  3. ACYCLOVIR [Concomitant]
  4. LAMISIL [Concomitant]

REACTIONS (2)
  - ORAL CANDIDIASIS [None]
  - VAGINAL SWELLING [None]
